FAERS Safety Report 9439900 (Version 1)
Quarter: 2013Q3

REPORT INFORMATION
  Report Type: Spontaneous
  Country: US (occurrence: US)
  Receive Date: 20130805
  Receipt Date: 20130805
  Transmission Date: 20140515
  Serious: Yes (Hospitalization)
  Sender: FDA-Public Use
  Company Number: US-JNJFOC-20130714638

PATIENT
  Age: 87 Year
  Sex: Male

DRUGS (4)
  1. DURAGESIC [Suspect]
     Indication: PRODUCT USED FOR UNKNOWN INDICATION
     Route: 062
  2. NIVOLUMAB [Suspect]
     Indication: NON-SMALL CELL LUNG CANCER
     Route: 042
     Dates: start: 20130626
  3. NIVOLUMAB [Suspect]
     Indication: NON-SMALL CELL LUNG CANCER
     Route: 042
     Dates: start: 20130516
  4. LISINOPRIL [Concomitant]
     Indication: HYPERTENSION
     Route: 065

REACTIONS (9)
  - Cellulitis [Recovering/Resolving]
  - Device related infection [Recovering/Resolving]
  - Hypotension [Recovered/Resolved]
  - Haemoglobin decreased [Unknown]
  - Hyperglycaemia [Unknown]
  - Platelet count decreased [Unknown]
  - Blood creatine decreased [Unknown]
  - Haematocrit decreased [Unknown]
  - Intentional drug misuse [Unknown]
